FAERS Safety Report 7594005-X (Version None)
Quarter: 2011Q3

REPORT INFORMATION
  Report Type: 
  Country: None (occurrence: None)
  Receive Date: 20110706
  Receipt Date: 20110630
  Transmission Date: 20111222
  Serious: Yes (Disabling, Other)
  Sender: FDA-Public Use
  Company Number: US-PFIZER INC-2010006411

PATIENT
  Sex: Male

DRUGS (1)
  1. CHANTIX [Suspect]
     Indication: SMOKING CESSATION THERAPY
     Dosage: 0.5 MG, UNK
     Dates: start: 20070410, end: 20070501

REACTIONS (7)
  - SUICIDE ATTEMPT [None]
  - HOMICIDAL IDEATION [None]
  - SCHIZOPHRENIA [None]
  - PARANOIA [None]
  - ANXIETY [None]
  - DEPRESSION [None]
  - AGGRESSION [None]
